FAERS Safety Report 25813594 (Version 1)
Quarter: 2025Q3

REPORT INFORMATION
  Report Type: Spontaneous
  Country: US (occurrence: US)
  Receive Date: 20250917
  Receipt Date: 20250917
  Transmission Date: 20251021
  Serious: Yes (Hospitalization)
  Sender: MYLAN
  Company Number: US-MYLANLABS-2025M1078139

PATIENT
  Age: 9 Year
  Sex: Male

DRUGS (24)
  1. SERTRALINE [Suspect]
     Active Substance: SERTRALINE HYDROCHLORIDE
     Indication: Obsessive-compulsive disorder
     Dosage: 37.5 MILLIGRAM, QD
     Dates: start: 202205
  2. CLONIDINE [Suspect]
     Active Substance: CLONIDINE
     Indication: Obsessive-compulsive disorder
     Dosage: 0.1 MILLIGRAM, QD
     Dates: start: 202205
  3. METHYLPHENIDATE [Suspect]
     Active Substance: METHYLPHENIDATE
     Indication: Attention deficit hyperactivity disorder
  4. PREDNISONE [Suspect]
     Active Substance: PREDNISONE
     Indication: Paediatric acute-onset neuropsychiatric syndrome
     Dosage: 35 MILLIGRAM, QD
  5. FLUVOXAMINE [Suspect]
     Active Substance: FLUVOXAMINE
     Indication: Obsessive-compulsive disorder
  6. FLUVOXAMINE [Suspect]
     Active Substance: FLUVOXAMINE
     Dosage: 100 MILLIGRAM, QD (TITRATED TO 100MG DAILY)
     Dates: start: 2022
  7. FLUVOXAMINE [Suspect]
     Active Substance: FLUVOXAMINE
     Dosage: 100 MILLIGRAM, QD
     Dates: start: 2022
  8. OLANZAPINE [Suspect]
     Active Substance: OLANZAPINE
     Indication: Obsessive-compulsive disorder
  9. OLANZAPINE [Suspect]
     Active Substance: OLANZAPINE
  10. KETAMINE [Suspect]
     Active Substance: KETAMINE
     Indication: Obsessive-compulsive disorder
  11. CLOMIPRAMINE [Suspect]
     Active Substance: CLOMIPRAMINE
     Indication: Obsessive-compulsive disorder
  12. LURASIDONE [Suspect]
     Active Substance: LURASIDONE
     Indication: Obsessive-compulsive disorder
  13. ARIPIPRAZOLE [Suspect]
     Active Substance: ARIPIPRAZOLE
     Indication: Mood swings
     Dosage: 7 MILLIGRAM, QD
     Dates: start: 202208, end: 202209
  14. LAMOTRIGINE [Suspect]
     Active Substance: LAMOTRIGINE
     Indication: Mood swings
     Dosage: 150 MILLIGRAM, QD
     Dates: start: 202208
  15. LAMOTRIGINE [Suspect]
     Active Substance: LAMOTRIGINE
     Dosage: 25 MILLIGRAM, BID
     Dates: start: 202208
  16. HUMAN IMMUNOGLOBULIN G [Suspect]
     Active Substance: HUMAN IMMUNOGLOBULIN G
     Indication: Paediatric acute-onset neuropsychiatric syndrome
  17. AZITHROMYCIN [Suspect]
     Active Substance: AZITHROMYCIN
     Indication: Paediatric acute-onset neuropsychiatric syndrome
     Dosage: 250 MILLIGRAM, 3XW
     Dates: start: 202208
  18. CLINDAMYCIN [Suspect]
     Active Substance: CLINDAMYCIN
     Indication: Paediatric acute-onset neuropsychiatric syndrome
  19. AUGMENTIN [Suspect]
     Active Substance: AMOXICILLIN\CLAVULANATE POTASSIUM
     Indication: Paediatric acute-onset neuropsychiatric syndrome
  20. VILOXAZINE [Suspect]
     Active Substance: VILOXAZINE
     Indication: Attention deficit hyperactivity disorder
  21. AMOXICILLIN [Concomitant]
     Active Substance: AMOXICILLIN
     Indication: Streptococcal infection
     Dosage: 500 MILLIGRAM, TID
     Dates: start: 202205
  22. IBUPROFEN [Concomitant]
     Active Substance: IBUPROFEN
     Indication: Product used for unknown indication
  23. LORAZEPAM [Concomitant]
     Active Substance: LORAZEPAM
     Indication: Sedative therapy
  24. CEFDINIR [Concomitant]
     Active Substance: CEFDINIR
     Indication: Product used for unknown indication

REACTIONS (1)
  - Drug ineffective [Unknown]
